FAERS Safety Report 5161918-8 (Version None)
Quarter: 2006Q4

REPORT INFORMATION
  Report Type: 
  Country: None (occurrence: None)
  Receive Date: 20061130
  Receipt Date: 20061024
  Transmission Date: 20070319
  Serious: No
  Sender: FDA-Public Use
  Company Number: US-GLAXOSMITHKLINE-A0624769A

PATIENT
  Age: 46 Year
  Sex: Male

DRUGS (4)
  1. WELLBUTRIN XL [Suspect]
     Indication: DEPRESSION
     Dosage: 300MG PER DAY
     Route: 048
     Dates: start: 20050501
  2. WELLBUTRIN SR [Suspect]
     Indication: DEPRESSION
     Route: 048
  3. PREVACID [Concomitant]
  4. ATIVAN [Concomitant]

REACTIONS (3)
  - DRUG INEFFECTIVE [None]
  - EMOTIONAL DISTRESS [None]
  - PHARMACEUTICAL PRODUCT COMPLAINT [None]
